FAERS Safety Report 7787373-7 (Version None)
Quarter: 2011Q3

REPORT INFORMATION
  Report Type: 
  Country: None (occurrence: None)
  Receive Date: 20110929
  Receipt Date: 20110919
  Transmission Date: 20111222
  Serious: Yes (Hospitalization)
  Sender: FDA-Public Use
  Company Number: PHHY2011BR52964

PATIENT
  Sex: Female

DRUGS (6)
  1. FORMOTEROL FUMARATE [Suspect]
     Indication: BRONCHITIS
     Dosage: 1 DF, BID
  2. ALBUTEROL [Concomitant]
     Indication: ASTHMA
     Dosage: UNK UKN, UNK
  3. DIGOXIN [Concomitant]
     Dosage: 1 DF, QD
     Route: 048
  4. CAPTOPRIL [Concomitant]
     Indication: HYPERTENSION
     Dosage: 1 DF, QD
  5. INSULIN [Concomitant]
     Indication: DIABETES MELLITUS
     Dosage: 20 UI IN MORNING AND 10 UI AT NIGHT
  6. HYDROCHLOROTHIAZIDE [Concomitant]
     Indication: HYPERTENSION
     Dosage: 1 DF, QD

REACTIONS (2)
  - PNEUMONIA [None]
  - LUNG DISORDER [None]
